FAERS Safety Report 18942493 (Version 11)
Quarter: 2022Q1

REPORT INFORMATION
  Report Type: Report from Study
  Country: IL (occurrence: IL)
  Receive Date: 20210225
  Receipt Date: 20220331
  Transmission Date: 20220424
  Serious: Yes (Hospitalization, Disabling)
  Sender: FDA-Public Use
  Company Number: IL-ABBVIE-21P-082-3755303-00

PATIENT
  Age: 71 Year
  Sex: Male
  Weight: 69 kg

DRUGS (10)
  1. VENETOCLAX [Suspect]
     Active Substance: VENETOCLAX
     Indication: Myelodysplastic syndrome
     Dosage: 14 DAY ON, 14 DAYS OFF
     Route: 048
     Dates: start: 20210110, end: 20210216
  2. VENETOCLAX [Suspect]
     Active Substance: VENETOCLAX
     Dosage: 14 DAY ON, 14 DAYS OFF
     Route: 048
     Dates: start: 20210314
  3. AZACITIDINE [Suspect]
     Active Substance: AZACITIDINE
     Indication: Myelodysplastic syndrome
     Dosage: 7 DAYS WITHIN THE FIRST 9 CALENDAR DAYS OF EACH 28 DAY CYCLE
     Route: 042
     Dates: start: 20210110, end: 20210118
  4. AZACITIDINE [Suspect]
     Active Substance: AZACITIDINE
     Dosage: 7 DAYS WITHIN THE FIRST 9 CALENDAR DAYS OF EACH 28 DAY CYCLE
     Route: 042
     Dates: start: 20210214, end: 20210215
  5. AZACITIDINE [Suspect]
     Active Substance: AZACITIDINE
     Dosage: 7 DAYS WITHIN THE FIRST 9 CALENDAR DAYS OF EACH 28 DAY CYCLE
     Route: 042
     Dates: start: 20210314
  6. PREDNISONE [Concomitant]
     Active Substance: PREDNISONE
     Indication: Myelodysplastic syndrome
     Route: 048
     Dates: start: 202008, end: 20210131
  7. DUTASTERIDE\TAMSULOSIN [Concomitant]
     Active Substance: DUTASTERIDE\TAMSULOSIN
     Indication: Dysuria
     Route: 048
     Dates: start: 2018
  8. CIPRALEX [Concomitant]
     Active Substance: ESCITALOPRAM OXALATE
     Indication: Anxiety
     Route: 048
     Dates: start: 20210211, end: 20210217
  9. CIPRALEX [Concomitant]
     Active Substance: ESCITALOPRAM OXALATE
     Indication: Depression
  10. NOCTURNO [Concomitant]
     Indication: Insomnia
     Route: 048
     Dates: start: 20210211, end: 20210214

REACTIONS (4)
  - Periorbital cellulitis [Recovered/Resolved]
  - Fungal tracheitis [Recovered/Resolved]
  - Pyrexia [Recovered/Resolved]
  - Febrile neutropenia [Recovered/Resolved]

NARRATIVE: CASE EVENT DATE: 20210128
